FAERS Safety Report 7910149-4 (Version None)
Quarter: 2011Q4

REPORT INFORMATION
  Report Type: 
  Country: None (occurrence: None)
  Receive Date: 20111111
  Receipt Date: 20110914
  Transmission Date: 20120403
  Serious: Yes (Other)
  Sender: FDA-Public Use
  Company Number: US-ROCHE-1009481

PATIENT

DRUGS (1)
  1. VALGANCICLOVIR [Suspect]
     Indication: CHRONIC FATIGUE SYNDROME

REACTIONS (3)
  - HERPES VIRUS INFECTION [None]
  - UNEVALUABLE EVENT [None]
  - LYME DISEASE [None]
